FAERS Safety Report 4299596-2 (Version None)
Quarter: 2004Q1

REPORT INFORMATION
  Report Type: 
  Country: None (occurrence: None)
  Receive Date: 20040217
  Receipt Date: 20040204
  Transmission Date: 20041129
  Serious: Yes (Hospitalization, Other)
  Sender: FDA-Public Use
  Company Number: 2004009174

PATIENT
  Age: 42 Year
  Sex: Male

DRUGS (4)
  1. SULPERAZON (CEFOPERAZONE, SULBACTAM) [Suspect]
     Indication: ILL-DEFINED DISORDER
     Dates: start: 20030106, end: 20040204
  2. GLICLAZIDE (GLICLAZIDE) [Concomitant]
  3. VOGLIBOSE (VOGLIBOSE) [Concomitant]
  4. PRAVASTATIN SODIUM [Concomitant]

REACTIONS (4)
  - ERYTHEMA [None]
  - PRURITUS [None]
  - SHOCK [None]
  - VOMITING [None]
